FAERS Safety Report 15980654 (Version 3)
Quarter: 2019Q1

REPORT INFORMATION
  Report Type: Spontaneous
  Country: US (occurrence: US)
  Receive Date: 20190219
  Receipt Date: 20190225
  Transmission Date: 20190418
  Serious: Yes (Other)
  Sender: FDA-Public Use
  Company Number: US-ALLERGAN-1906384US

PATIENT
  Age: 52 Year
  Sex: Male

DRUGS (5)
  1. NEURONTIN [Suspect]
     Active Substance: GABAPENTIN
     Indication: SPINAL CORD INJURY
     Dosage: 800 MG, UNK
     Route: 065
     Dates: start: 201901
  2. TYLENOL [Concomitant]
     Active Substance: ACETAMINOPHEN
     Indication: PAIN
     Dosage: 1000 MG, UNK
     Route: 048
     Dates: start: 201709, end: 201710
  3. NORCO [Suspect]
     Active Substance: ACETAMINOPHEN\HYDROCODONE BITARTRATE
     Indication: SPINAL CORD INJURY
     Dosage: UNK
     Route: 048
     Dates: start: 201709, end: 201710
  4. VESICARE [Concomitant]
     Active Substance: SOLIFENACIN SUCCINATE
     Indication: PRODUCT USED FOR UNKNOWN INDICATION
     Route: 065
  5. NEURONTIN [Suspect]
     Active Substance: GABAPENTIN
     Indication: PHANTOM PAIN
     Dosage: UNK
     Route: 065

REACTIONS (7)
  - Liver disorder [Recovered/Resolved]
  - Functional gastrointestinal disorder [Unknown]
  - Diarrhoea [Unknown]
  - Constipation [Unknown]
  - Hypoaesthesia [Unknown]
  - Hyponatraemia [Unknown]
  - Circulatory collapse [Unknown]
